FAERS Safety Report 5537607-4 (Version None)
Quarter: 2007Q4

REPORT INFORMATION
  Report Type: 
  Country: None (occurrence: None)
  Receive Date: 20071207
  Receipt Date: 20071127
  Transmission Date: 20080405
  Serious: Yes (Congenital Anomaly)
  Sender: FDA-Public Use
  Company Number: IT-GILEAD-2007-0014458

PATIENT
  Sex: Female

DRUGS (3)
  1. VIREAD [Suspect]
     Indication: HIV INFECTION
     Route: 064
  2. LAMIVUDINE [Concomitant]
     Route: 064
  3. NEVIRAPINE [Concomitant]
     Route: 064

REACTIONS (1)
  - CONGENITAL PYELOCALIECTASIS [None]
